FAERS Safety Report 5850871-7 (Version None)
Quarter: 2008Q3

REPORT INFORMATION
  Report Type: 
  Country: None (occurrence: None)
  Receive Date: 20080820
  Receipt Date: 20080813
  Transmission Date: 20090109
  Serious: Yes (Other)
  Sender: FDA-Public Use
  Company Number: US-BAYER-200824849NA

PATIENT
  Age: 41 Year
  Sex: Female
  Weight: 68 kg

DRUGS (8)
  1. MIRENA [Suspect]
     Indication: VAGINAL HAEMORRHAGE
     Route: 015
     Dates: start: 20080403
  2. ALBUTEROL [Concomitant]
     Indication: ASTHMA
  3. ADVAIR DISKUS 100/50 [Concomitant]
     Indication: ASTHMA
  4. ALDACTONE [Concomitant]
     Indication: FLUID RETENTION
     Dosage: UNIT DOSE: 25 MG
     Route: 048
  5. LASIX [Concomitant]
     Indication: FLUID RETENTION
     Dosage: UNIT DOSE: 20 MG
     Route: 048
  6. CYMBALTA [Concomitant]
     Indication: DRUG USE FOR UNKNOWN INDICATION
     Dosage: TOTAL DAILY DOSE: 4 MG
     Route: 048
  7. OXYCONTIN [Concomitant]
     Indication: PAIN
     Dosage: TOTAL DAILY DOSE: 90 MG
     Route: 048
  8. NORCO [Concomitant]
     Indication: BREAKTHROUGH PAIN
     Route: 048

REACTIONS (4)
  - GOITRE [None]
  - POST PROCEDURAL HAEMORRHAGE [None]
  - PROCEDURAL PAIN [None]
  - SKIN DISCOLOURATION [None]
